FAERS Safety Report 4844376-X (Version None)
Quarter: 2005Q4

REPORT INFORMATION
  Report Type: 
  Country: None (occurrence: None)
  Receive Date: 20051202
  Receipt Date: 20051123
  Transmission Date: 20060501
  Serious: Yes (Hospitalization)
  Sender: FDA-Public Use
  Company Number: AU-MERCK-0511AUS00343

PATIENT
  Age: 77 Year
  Sex: Male

DRUGS (5)
  1. COSOPT [Suspect]
     Route: 047
     Dates: start: 20050801
  2. HYDROCHLOROTHIAZIDE AND IRBESARTAN [Concomitant]
     Route: 065
  3. LANSOPRAZOLE [Concomitant]
     Route: 065
  4. PREDNISONE [Concomitant]
     Route: 065
  5. GLYBURIDE [Concomitant]
     Route: 065

REACTIONS (1)
  - PLATELET COUNT DECREASED [None]
